FAERS Safety Report 6930226-4 (Version None)
Quarter: 2010Q3

REPORT INFORMATION
  Report Type: 
  Country: None (occurrence: None)
  Receive Date: 20100817
  Receipt Date: 20100817
  Transmission Date: 20110219
  Serious: Yes (Disabling)
  Sender: FDA-Public Use
  Company Number: None

PATIENT
  Age: 82 Year
  Sex: Female
  Weight: 68.0396 kg

DRUGS (1)
  1. REGLAN [Suspect]
     Indication: GASTROOESOPHAGEAL REFLUX DISEASE
     Dosage: 4 TIMES DAILY STOPPED ABOUT 9 MO AGO

REACTIONS (4)
  - MUSCULAR WEAKNESS [None]
  - SPEECH DISORDER [None]
  - TARDIVE DYSKINESIA [None]
  - TREMOR [None]
